FAERS Safety Report 5888707-0 (Version None)
Quarter: 2008Q3

REPORT INFORMATION
  Report Type: 
  Country: None (occurrence: None)
  Receive Date: 20080917
  Receipt Date: 20080905
  Transmission Date: 20090109
  Serious: Yes (Death, Congenital Anomaly)
  Sender: FDA-Public Use
  Company Number: GXKR2008GB08779

PATIENT

DRUGS (5)
  1. ACETYLSALICYLIC ACID SRT [Suspect]
     Dosage: TRANSPLACENTAL
     Route: 064
  2. CARBAMAZEPINE [Suspect]
     Dosage: UNK; TRANSPLACENTAL
     Route: 064
  3. LAMOTRIGINE [Suspect]
     Dosage: TRANSPLACENTAL
     Route: 064
  4. HEPARIN [Suspect]
     Dosage: TRANSPLACENTAL
     Route: 064
  5. ACETAZOLAMIDE [Suspect]
     Dosage: TRANSPLACENTAL
     Route: 064

REACTIONS (9)
  - CARDIAC ANEURYSM [None]
  - CARDIAC TAMPONADE [None]
  - FOETAL DISORDER [None]
  - HEART DISEASE CONGENITAL [None]
  - INTRA-UTERINE DEATH [None]
  - INTRACARDIAC THROMBUS [None]
  - MATERNAL DRUGS AFFECTING FOETUS [None]
  - PERICARDIAL DRAINAGE [None]
  - PERICARDIAL HAEMORRHAGE [None]
